FAERS Safety Report 15195806 (Version 2)
Quarter: 2018Q3

REPORT INFORMATION
  Report Type: Spontaneous
  Country: US (occurrence: US)
  Receive Date: 20180725
  Receipt Date: 20180831
  Transmission Date: 20181010
  Serious: No
  Sender: FDA-Public Use
  Company Number: US-ASTRAZENECA-2018SE83607

PATIENT
  Sex: Male
  Weight: 23.1 kg

DRUGS (4)
  1. VENTOLIN [Concomitant]
     Active Substance: ALBUTEROL SULFATE
  2. SINGULAIR [Concomitant]
     Active Substance: MONTELUKAST SODIUM
  3. SYMBICORT [Suspect]
     Active Substance: BUDESONIDE\FORMOTEROL FUMARATE DIHYDRATE
     Indication: ASTHMA
     Dosage: 80/4.5 MCG TWO PUFFS IN THE MORNING AND TWO PUFFS AT NIGHT
     Route: 055
     Dates: start: 201704
  4. CLARITIN [Concomitant]
     Active Substance: LORATADINE
     Dosage: EVERY OTHER DAY

REACTIONS (5)
  - Off label use of device [Unknown]
  - Drug dose omission [Not Recovered/Not Resolved]
  - Device issue [Unknown]
  - Dyspnoea [Unknown]
  - Intentional product misuse [Unknown]
